FAERS Safety Report 10045298 (Version 1)
Quarter: 2014Q1

REPORT INFORMATION
  Report Type: Spontaneous
  Country: SK (occurrence: SK)
  Receive Date: 20140328
  Receipt Date: 20140328
  Transmission Date: 20141002
  Serious: Yes (Life-Threatening, Hospitalization)
  Sender: FDA-Public Use
  Company Number: SK-B.I. PHARMACEUTICALS,INC./RIDGEFIELD-2014-BI-13488SK

PATIENT
  Age: 86 Year
  Sex: Male

DRUGS (7)
  1. PRADAXA [Suspect]
     Indication: ATRIAL FIBRILLATION
     Dosage: 220 MG
     Route: 048
     Dates: start: 201306, end: 20140326
  2. DETRALEX [Concomitant]
     Route: 065
  3. PANTOPRAZOL [Concomitant]
     Route: 065
  4. EBELBIN [Concomitant]
     Route: 065
  5. FUROSEMID [Concomitant]
     Route: 065
  6. LOSARTAN [Concomitant]
     Route: 065
  7. MILURIT [Concomitant]
     Route: 065

REACTIONS (2)
  - Cerebral haemorrhage [Unknown]
  - Hemiparesis [Unknown]
